FAERS Safety Report 12552659 (Version 1)
Quarter: 2016Q3

REPORT INFORMATION
  Report Type: Spontaneous
  Country: US (occurrence: None)
  Receive Date: 20160712
  Receipt Date: 20160712
  Transmission Date: 20161109
  Serious: Yes (Other)
  Sender: FDA-Public Use
  Company Number: None

PATIENT
  Sex: Female

DRUGS (1)
  1. H.P. ACTHAR [Suspect]
     Active Substance: CORTICOTROPIN
     Indication: PRODUCT USED FOR UNKNOWN INDICATION
     Dosage: ACHTAR 80/UNITS ?FREQUENCY - Q3DAYS?SUBCUTANEOUSLY
     Route: 058
     Dates: start: 201606

REACTIONS (3)
  - Swelling [None]
  - Fluid retention [None]
  - Pain [None]
